FAERS Safety Report 22090212 (Version 1)
Quarter: 2023Q1

REPORT INFORMATION
  Report Type: Spontaneous
  Country: US (occurrence: US)
  Receive Date: 20230313
  Receipt Date: 20230313
  Transmission Date: 20230418
  Serious: No
  Sender: FDA-Public Use
  Company Number: US-JNJFOC-20230310754

PATIENT
  Age: 68 Year
  Sex: Female

DRUGS (1)
  1. REMICADE [Suspect]
     Active Substance: INFLIXIMAB
     Indication: Psoriatic arthropathy
     Route: 058

REACTIONS (6)
  - Rash [Recovering/Resolving]
  - Rash pruritic [Unknown]
  - Muscle spasms [Unknown]
  - Pain in extremity [Unknown]
  - Pain [Unknown]
  - Infusion related reaction [Unknown]
